FAERS Safety Report 5058251-1 (Version None)
Quarter: 2006Q2

REPORT INFORMATION
  Report Type: 
  Country: None (occurrence: None)
  Receive Date: 20060627
  Receipt Date: 20050712
  Transmission Date: 20061013
  Serious: Yes (Other)
  Sender: FDA-Public Use
  Company Number: 410741

PATIENT
  Sex: Male

DRUGS (3)
  1. ROFERON-A [Suspect]
     Indication: DRUG USE FOR UNKNOWN INDICATION
  2. PEGASYS [Concomitant]
  3. COPEGUS [Concomitant]

REACTIONS (1)
  - DIABETES MELLITUS NON-INSULIN-DEPENDENT [None]
